FAERS Safety Report 5316508-0 (Version None)
Quarter: 2007Q2

REPORT INFORMATION
  Report Type: 
  Country: None (occurrence: None)
  Receive Date: 20070504
  Receipt Date: 20070423
  Transmission Date: 20071010
  Serious: Yes (Hospitalization)
  Sender: FDA-Public Use
  Company Number: US-NOVOPROD-261713

PATIENT
  Age: 7 Year
  Sex: Female
  Weight: 22.676 kg

DRUGS (3)
  1. LEVEMIR [Suspect]
     Indication: DIABETES MELLITUS INSULIN-DEPENDENT
     Dosage: 5-8 IU, QD
     Route: 058
     Dates: start: 20070128, end: 20070328
  2. LANTUS [Concomitant]
     Indication: DIABETES MELLITUS INSULIN-DEPENDENT
     Route: 058
     Dates: start: 20070316, end: 20070323
  3. LANTUS [Concomitant]
     Dosage: 7 U, QD
     Route: 058
     Dates: start: 20070329

REACTIONS (4)
  - BLOOD GLUCOSE INCREASED [None]
  - INFLUENZA LIKE ILLNESS [None]
  - LYMPHADENOPATHY [None]
  - SPLENOMEGALY [None]
